FAERS Safety Report 7080930-5 (Version None)
Quarter: 2010Q4

REPORT INFORMATION
  Report Type: 
  Country: None (occurrence: None)
  Receive Date: 20101102
  Receipt Date: 20101102
  Transmission Date: 20110411
  Serious: Yes (Other)
  Sender: FDA-Public Use
  Company Number: None

PATIENT
  Age: 52 Year
  Weight: 48.3 kg

DRUGS (1)
  1. RAPAMUNE [Suspect]

REACTIONS (1)
  - ALVEOLITIS ALLERGIC [None]
